FAERS Safety Report 9244922 (Version 1)
Quarter: 2013Q2

REPORT INFORMATION
  Report Type: Spontaneous
  Country: GB (occurrence: GB)
  Receive Date: 20130422
  Receipt Date: 20130422
  Transmission Date: 20140414
  Serious: Yes (Life-Threatening, Hospitalization)
  Sender: FDA-Public Use
  Company Number: GB-JNJFOC-20130409498

PATIENT
  Age: 85 Year
  Sex: Male
  Weight: 60 kg

DRUGS (14)
  1. XARELTO [Suspect]
     Indication: THROMBOSIS PROPHYLAXIS
     Route: 048
     Dates: start: 20130212, end: 20130304
  2. XARELTO [Suspect]
     Indication: ATRIAL FIBRILLATION
     Route: 048
     Dates: start: 20130212, end: 20130304
  3. ACETYLSALICYLIC ACID [Concomitant]
     Route: 065
     Dates: start: 20120612
  4. BUDESONIDE W/FORMOTEROL FUMARATE [Concomitant]
     Route: 065
     Dates: start: 20090331
  5. GLICLAZIDE [Concomitant]
     Route: 065
     Dates: start: 20090217
  6. INDAPAMIDE [Concomitant]
     Route: 065
     Dates: start: 20130123
  7. VENTOLIN [Concomitant]
     Route: 065
     Dates: start: 20110506
  8. LANSOPRAZOLE [Concomitant]
     Route: 065
     Dates: start: 20080513
  9. ISOSORBIDEMONONITRAAT CF [Concomitant]
     Route: 065
     Dates: start: 20081126
  10. PRAVASTATIN [Concomitant]
     Route: 065
     Dates: start: 20130125
  11. SALBUTAMOL [Concomitant]
     Route: 065
     Dates: start: 20080819
  12. TAMSULOSIN HYDROCHLORIDE [Concomitant]
     Route: 065
     Dates: start: 20080717
  13. ADIZEM-XL [Concomitant]
     Route: 065
     Dates: start: 20111019
  14. IPRATROPIUM BROMIDE [Concomitant]
     Route: 065
     Dates: start: 20080513

REACTIONS (4)
  - Acute myocardial infarction [Recovering/Resolving]
  - Pneumonia [Recovering/Resolving]
  - Left ventricular failure [Recovering/Resolving]
  - Lower respiratory tract infection [Recovering/Resolving]
